FAERS Safety Report 25854273 (Version 1)
Quarter: 2025Q3

REPORT INFORMATION
  Report Type: Spontaneous
  Country: US (occurrence: US)
  Receive Date: 20250926
  Receipt Date: 20250926
  Transmission Date: 20251021
  Serious: Yes (Hospitalization)
  Sender: MERCK SHARP & DOHME LLC
  Company Number: US-009507513-2331026

PATIENT
  Age: 66 Year
  Sex: Male

DRUGS (1)
  1. SUVOREXANT [Suspect]
     Active Substance: SUVOREXANT
     Indication: Insomnia
     Route: 048
     Dates: start: 202505

REACTIONS (7)
  - Spinal laminectomy [Not Recovered/Not Resolved]
  - Procedural pain [Unknown]
  - Somnolence [Unknown]
  - Muscular weakness [Unknown]
  - Drug effect less than expected [Unknown]
  - Drug ineffective [Unknown]
  - Aphasia [Unknown]

NARRATIVE: CASE EVENT DATE: 20250801
